FAERS Safety Report 8114556-9 (Version None)
Quarter: 2012Q1

REPORT INFORMATION
  Report Type: 
  Country: None (occurrence: None)
  Receive Date: 20120206
  Receipt Date: 20120203
  Transmission Date: 20120608
  Serious: No
  Sender: FDA-Public Use
  Company Number: US-PFIZER INC-2012030841

PATIENT
  Sex: Male
  Weight: 84.807 kg

DRUGS (3)
  1. ZOLOFT [Suspect]
     Indication: DEPRESSION
     Dosage: 50 MG, 1X/DAY
     Route: 048
     Dates: start: 20120202
  2. ZOLOFT [Suspect]
     Indication: ANXIETY
  3. SONATA [Concomitant]
     Indication: INSOMNIA
     Dosage: UNK

REACTIONS (2)
  - NAUSEA [None]
  - MYALGIA [None]
